FAERS Safety Report 25212179 (Version 1)
Quarter: 2025Q2

REPORT INFORMATION
  Report Type: Other
  Country: US (occurrence: US)
  Receive Date: 20250418
  Receipt Date: 20250418
  Transmission Date: 20250717
  Serious: Yes (Hospitalization)
  Sender: ANI
  Company Number: US-ANIPHARMA-022393

PATIENT
  Age: 79 Year
  Sex: Female

DRUGS (9)
  1. PYRIDOSTIGMINE [Suspect]
     Active Substance: PYRIDOSTIGMINE
     Indication: Myasthenia gravis
  2. PEMBROLIZUMAB [Concomitant]
     Active Substance: PEMBROLIZUMAB
     Indication: Renal cell carcinoma
  3. immune-globulin [Concomitant]
     Indication: Myocarditis
  4. MYCOPHENOLATE MOFETIL [Concomitant]
     Active Substance: MYCOPHENOLATE MOFETIL
     Indication: Immunosuppressant drug therapy
  5. immune-globulin [Concomitant]
     Indication: Myocarditis
  6. immune-globulin [Concomitant]
     Indication: Myositis
  7. immune-globulin [Concomitant]
     Indication: Myasthenia gravis
  8. immune-globulin [Concomitant]
     Indication: Myositis
  9. immune-globulin [Concomitant]
     Indication: Myasthenia gravis

REACTIONS (1)
  - Bradycardia [Unknown]
